FAERS Safety Report 6049091-5 (Version None)
Quarter: 2009Q1

REPORT INFORMATION
  Report Type: 
  Country: None (occurrence: None)
  Receive Date: 20090123
  Receipt Date: 20090115
  Transmission Date: 20090719
  Serious: Yes (Hospitalization, Other)
  Sender: FDA-Public Use
  Company Number: DE-ABBOTT-09P-062-0497922-00

PATIENT
  Sex: Male
  Weight: 66 kg

DRUGS (4)
  1. HUMIRA [Suspect]
     Indication: PSORIASIS
     Route: 050
     Dates: start: 20080501, end: 20080901
  2. PANTOZOL [Concomitant]
     Indication: DRUG USE FOR UNKNOWN INDICATION
     Dates: start: 20081101
  3. ALLOPURINOL [Concomitant]
     Indication: DRUG USE FOR UNKNOWN INDICATION
     Dates: start: 20081101
  4. PREDNISOLONE [Concomitant]
     Indication: DRUG USE FOR UNKNOWN INDICATION
     Dosage: 50 MG
     Dates: end: 20081129

REACTIONS (8)
  - ASCITES [None]
  - HEPATOSPLENOMEGALY [None]
  - METASTASES TO LYMPH NODES [None]
  - METASTASES TO PERITONEUM [None]
  - PERICARDIAL EFFUSION [None]
  - T-CELL LYMPHOMA [None]
  - TUBERCULOSIS [None]
  - UNEVALUABLE EVENT [None]
